FAERS Safety Report 4822709-8 (Version None)
Quarter: 2005Q4

REPORT INFORMATION
  Report Type: 
  Country: None (occurrence: None)
  Receive Date: 20051108
  Receipt Date: 20051005
  Transmission Date: 20060501
  Serious: Yes (Other)
  Sender: FDA-Public Use
  Company Number: US-AMGEN-US153126

PATIENT
  Age: 58 Year
  Sex: Female

DRUGS (5)
  1. ENBREL [Suspect]
     Indication: RHEUMATOID ARTHRITIS
     Dates: start: 20050822
  2. CELEBREX [Concomitant]
     Dates: start: 20040816
  3. ADVAIR DISKUS 100/50 [Concomitant]
     Dates: start: 20040207
  4. FOSAMAX [Concomitant]
     Dates: start: 20030620
  5. SULFASALAZINE [Concomitant]
     Dates: start: 20050409

REACTIONS (3)
  - ALANINE AMINOTRANSFERASE INCREASED [None]
  - ASPARTATE AMINOTRANSFERASE INCREASED [None]
  - HEPATIC ENZYME INCREASED [None]
